FAERS Safety Report 18123691 (Version 2)
Quarter: 2022Q1

REPORT INFORMATION
  Report Type: Spontaneous
  Country: US (occurrence: US)
  Receive Date: 20200807
  Receipt Date: 20220301
  Transmission Date: 20220423
  Serious: No
  Sender: FDA-Public Use
  Company Number: US-AEGERION PHARMACEUTICAL, INC-AEGR004810

PATIENT
  Sex: Female
  Weight: 48.889 kg

DRUGS (14)
  1. MYALEPT [Suspect]
     Active Substance: METRELEPTIN
     Indication: Lipodystrophy acquired
     Dosage: 5 MG, QD
     Route: 058
     Dates: start: 20170701
  2. EPICERAM  EML EXT RL [Concomitant]
     Indication: Product used for unknown indication
  3. CLOBETASOL [Concomitant]
     Active Substance: CLOBETASOL
     Indication: Product used for unknown indication
  4. MULTIVITAMINS                      /07504101/ [Concomitant]
     Indication: Product used for unknown indication
  5. ZINC [Concomitant]
     Active Substance: ZINC
     Indication: Product used for unknown indication
  6. ELETONE [Concomitant]
     Indication: Product used for unknown indication
  7. METFORMIN HYDROCHLORIDE [Concomitant]
     Active Substance: METFORMIN HYDROCHLORIDE
     Indication: Product used for unknown indication
  8. ATORVASTATIN CALCIUM [Concomitant]
     Active Substance: ATORVASTATIN CALCIUM
     Indication: Product used for unknown indication
  9. PIOGLITAZONE                       /01460202/ [Concomitant]
     Indication: Product used for unknown indication
  10. FLONASE                            /00908302/ [Concomitant]
     Indication: Product used for unknown indication
  11. HUMULIN NK WIKPEN [Concomitant]
     Indication: Product used for unknown indication
  12. NOVOLOG  FLEXIPEN [Concomitant]
     Indication: Product used for unknown indication
  13. MINERALS\VITAMINS [Concomitant]
     Active Substance: MINERALS\VITAMINS
     Indication: Product used for unknown indication
  14. BACTERIOSTATIC WATER [Concomitant]
     Active Substance: WATER
     Indication: Product used for unknown indication

REACTIONS (7)
  - Product administration error [Unknown]
  - Injection site vesicles [Recovered/Resolved]
  - Injection site irritation [Unknown]
  - Injection site pain [Recovered/Resolved]
  - Injection site haemorrhage [Unknown]
  - Injection site bruising [Unknown]
  - Injection site rash [Recovered/Resolved]

NARRATIVE: CASE EVENT DATE: 20200101
